FAERS Safety Report 10094437 (Version 1)
Quarter: 2014Q2

REPORT INFORMATION
  Report Type: Spontaneous
  Country: US (occurrence: US)
  Receive Date: 20140422
  Receipt Date: 20140422
  Transmission Date: 20141212
  Serious: No
  Sender: FDA-Public Use
  Company Number: US-MYLANLABS-2013S1023905

PATIENT
  Sex: Female

DRUGS (1)
  1. METHIMAZOLE TABLETS USP [Suspect]
     Indication: HYPERTHYROIDISM
     Route: 048

REACTIONS (2)
  - Palpitations [Recovered/Resolved]
  - Unevaluable event [Recovered/Resolved]
